FAERS Safety Report 6546395-4 (Version None)
Quarter: 2010Q1

REPORT INFORMATION
  Report Type: 
  Country: None (occurrence: None)
  Receive Date: 20100122
  Receipt Date: 20091230
  Transmission Date: 20100710
  Serious: Yes (Other)
  Sender: FDA-Public Use
  Company Number: BE-ASTRAZENECA-2009SE29540

PATIENT
  Age: 40 Year
  Sex: Female

DRUGS (4)
  1. SEROQUEL [Suspect]
     Indication: NEGATIVE THOUGHTS
     Route: 048
  2. SEROQUEL [Suspect]
     Indication: AFFECTIVE DISORDER
     Route: 048
  3. SEROQUEL [Suspect]
     Route: 048
     Dates: start: 20090901, end: 20091001
  4. SEROQUEL [Suspect]
     Route: 048
     Dates: start: 20090901, end: 20091001

REACTIONS (3)
  - ABDOMINAL PAIN [None]
  - COELIAC DISEASE [None]
  - NAUSEA [None]
